FAERS Safety Report 17265527 (Version 1)
Quarter: 2020Q1

REPORT INFORMATION
  Report Type: Other
  Country: DE (occurrence: DE)
  Receive Date: 20200114
  Receipt Date: 20200114
  Transmission Date: 20200409
  Serious: Yes (Hospitalization)
  Sender: FDA-Public Use
  Company Number: DE-CELLTRION INC.-2020DE017589

PATIENT

DRUGS (40)
  1. VINCRISTINE [Suspect]
     Active Substance: VINCRISTINE
     Indication: DIFFUSE LARGE B-CELL LYMPHOMA
     Dosage: 2 MG, UNK
     Route: 041
     Dates: start: 20180913, end: 20180913
  2. VINCRISTINE [Suspect]
     Active Substance: VINCRISTINE
     Dosage: 2 MG, UNK
     Route: 041
     Dates: start: 20180927, end: 20180927
  3. VINCRISTINE [Suspect]
     Active Substance: VINCRISTINE
     Dosage: 2 MG, UNK
     Route: 041
     Dates: start: 20181127, end: 20181127
  4. PREDNISONE. [Suspect]
     Active Substance: PREDNISONE
     Dosage: 500 MG, UNK
     Route: 048
     Dates: start: 20181016, end: 20181020
  5. PREDNISONE. [Suspect]
     Active Substance: PREDNISONE
     Dosage: 500 MG, UNK
     Route: 048
     Dates: start: 20181113, end: 20181117
  6. CYCLOPHOSPHAMIDE. [Suspect]
     Active Substance: CYCLOPHOSPHAMIDE
     Dosage: 1650 MG, UNK
     Route: 041
     Dates: start: 20180927, end: 20180927
  7. MESNA. [Concomitant]
     Active Substance: MESNA
     Indication: PROPHYLAXIS
     Dosage: UNK
     Route: 048
     Dates: start: 20180913, end: 20181127
  8. RITUXIMAB (UNKNOWN) [Suspect]
     Active Substance: RITUXIMAB
     Dosage: 825 MG, UNK
     Route: 041
     Dates: start: 20190121
  9. PREDNISONE. [Suspect]
     Active Substance: PREDNISONE
     Dosage: 500 MG, UNK
     Route: 048
     Dates: start: 20181030, end: 20181103
  10. DOXORUBICIN [Suspect]
     Active Substance: DOXORUBICIN
     Dosage: 100 MG, UNK
     Route: 041
     Dates: start: 20181020, end: 20181020
  11. RITUXIMAB (UNKNOWN) [Suspect]
     Active Substance: RITUXIMAB
     Indication: DIFFUSE LARGE B-CELL LYMPHOMA
     Dosage: 825 MG, UNK
     Route: 041
     Dates: start: 20180912, end: 20180912
  12. RITUXIMAB (UNKNOWN) [Suspect]
     Active Substance: RITUXIMAB
     Dosage: 825 MG, UNK
     Route: 041
     Dates: start: 20180926, end: 20180926
  13. RITUXIMAB (UNKNOWN) [Suspect]
     Active Substance: RITUXIMAB
     Dosage: 825 MG, UNK
     Route: 041
     Dates: start: 20181015, end: 20181015
  14. RITUXIMAB (UNKNOWN) [Suspect]
     Active Substance: RITUXIMAB
     Dosage: 825 MG, UNK
     Route: 041
     Dates: start: 20181029, end: 20181029
  15. RITUXIMAB (UNKNOWN) [Suspect]
     Active Substance: RITUXIMAB
     Dosage: 825 MG, UNK
     Route: 041
     Dates: start: 20181126, end: 20181126
  16. CYCLOPHOSPHAMIDE. [Suspect]
     Active Substance: CYCLOPHOSPHAMIDE
     Dosage: 1650 MG, UNK
     Route: 041
     Dates: start: 20181113, end: 20181113
  17. CYCLOPHOSPHAMIDE. [Suspect]
     Active Substance: CYCLOPHOSPHAMIDE
     Dosage: 1650 MG, UNK
     Route: 041
     Dates: start: 20181127, end: 20181127
  18. DOXORUBICIN [Suspect]
     Active Substance: DOXORUBICIN
     Dosage: 100 MG, UNK
     Route: 041
     Dates: start: 20181113, end: 20181113
  19. PARACETAMOL [Concomitant]
     Active Substance: ACETAMINOPHEN
     Indication: PROPHYLAXIS
     Dosage: UNK
     Route: 048
     Dates: start: 20180912, end: 20190921
  20. DOXORUBICIN [Suspect]
     Active Substance: DOXORUBICIN
     Indication: DIFFUSE LARGE B-CELL LYMPHOMA
     Dosage: 110 MG, UNK
     Route: 041
     Dates: start: 20180913, end: 20180913
  21. DOXORUBICIN [Suspect]
     Active Substance: DOXORUBICIN
     Dosage: 100 MG, UNK
     Route: 041
     Dates: start: 20180927, end: 20180927
  22. RITUXIMAB (UNKNOWN) [Suspect]
     Active Substance: RITUXIMAB
     Dosage: 825 MG, UNK
     Route: 041
     Dates: start: 20181112, end: 20181112
  23. RITUXIMAB (UNKNOWN) [Suspect]
     Active Substance: RITUXIMAB
     Dosage: 825 MG, UNK
     Route: 041
     Dates: start: 20181210, end: 20181210
  24. PREDNISONE. [Suspect]
     Active Substance: PREDNISONE
     Indication: DIFFUSE LARGE B-CELL LYMPHOMA
     Dosage: 500 MG, UNK
     Route: 048
     Dates: start: 20180913, end: 20180917
  25. PANTOZOL [Concomitant]
     Active Substance: PANTOPRAZOLE SODIUM
     Indication: PROPHYLAXIS
     Dosage: UNK
     Route: 048
     Dates: start: 20180907
  26. RANITIDIN [Concomitant]
     Active Substance: RANITIDINE HYDROCHLORIDE
     Indication: PROPHYLAXIS
     Dosage: UNK
     Route: 042
     Dates: start: 20180912, end: 20190121
  27. VINCRISTINE [Suspect]
     Active Substance: VINCRISTINE
     Dosage: 2 MG, UNK
     Route: 041
     Dates: start: 20181016, end: 20181016
  28. VINCRISTINE [Suspect]
     Active Substance: VINCRISTINE
     Dosage: 2 MG, UNK
     Route: 041
     Dates: start: 20181113, end: 20181113
  29. CYCLOPHOSPHAMIDE. [Suspect]
     Active Substance: CYCLOPHOSPHAMIDE
     Dosage: 1650 MG, UNK
     Route: 041
     Dates: start: 20181016, end: 20181016
  30. VINCRISTINE [Suspect]
     Active Substance: VINCRISTINE
     Dosage: 2 MG, UNK
     Route: 041
     Dates: start: 20181030, end: 20181030
  31. PREDNISONE. [Suspect]
     Active Substance: PREDNISONE
     Dosage: 500 MG, UNK
     Route: 048
     Dates: start: 20180927, end: 20181001
  32. DOXORUBICIN [Suspect]
     Active Substance: DOXORUBICIN
     Dosage: 100 MG, UNK
     Route: 041
     Dates: start: 20181127, end: 20181127
  33. LONQUEX [Concomitant]
     Active Substance: LIPEGFILGRASTIM
     Indication: PROPHYLAXIS
     Dosage: UNK
     Route: 058
     Dates: start: 20180914, end: 20181128
  34. DIMETINDENE [Concomitant]
     Active Substance: DIMETHINDENE
     Indication: PROPHYLAXIS
     Dosage: UNK
     Route: 042
     Dates: start: 20180912, end: 20190121
  35. PALONOSETRON. [Concomitant]
     Active Substance: PALONOSETRON HYDROCHLORIDE
     Indication: PROPHYLAXIS
     Dosage: UNK
     Route: 042
     Dates: start: 20180913, end: 20181127
  36. PREDNISONE. [Suspect]
     Active Substance: PREDNISONE
     Dosage: 500 MG, UNK
     Route: 048
     Dates: start: 20181127, end: 20181201
  37. CYCLOPHOSPHAMIDE. [Suspect]
     Active Substance: CYCLOPHOSPHAMIDE
     Indication: DIFFUSE LARGE B-CELL LYMPHOMA
     Dosage: 1650 MG, UNK
     Route: 041
     Dates: start: 20180913, end: 20180913
  38. CYCLOPHOSPHAMIDE. [Suspect]
     Active Substance: CYCLOPHOSPHAMIDE
     Dosage: 1650 MG, UNK
     Route: 041
     Dates: start: 20181030, end: 20181030
  39. DOXORUBICIN [Suspect]
     Active Substance: DOXORUBICIN
     Dosage: 100 MG, UNK
     Route: 041
     Dates: start: 20181016, end: 20181016
  40. PREDNISOLUT [PREDNISOLONE SODIUM SUCCINATE] [Concomitant]
     Indication: PROPHYLAXIS
     Dosage: UNK
     Route: 042
     Dates: start: 20180912, end: 20190121

REACTIONS (4)
  - Cough [Recovered/Resolved]
  - Haemoptysis [Recovered/Resolved]
  - Fatigue [Recovered/Resolved]
  - Underdose [Unknown]

NARRATIVE: CASE EVENT DATE: 20181008
